FAERS Safety Report 18039652 (Version 1)
Quarter: 2020Q3

REPORT INFORMATION
  Report Type: Spontaneous
  Country: KR (occurrence: KR)
  Receive Date: 20200717
  Receipt Date: 20200717
  Transmission Date: 20201103
  Serious: Yes (Other)
  Sender: FDA-Public Use
  Company Number: KR-ABBVIE-20K-090-3484135-00

PATIENT
  Age: 32 Year
  Sex: Female

DRUGS (3)
  1. VALPROIC ACID. [Interacting]
     Active Substance: VALPROIC ACID
     Route: 048
  2. VALPROIC ACID. [Suspect]
     Active Substance: VALPROIC ACID
     Indication: STATUS EPILEPTICUS
     Dosage: (30 MG/KG BOLUS)
     Route: 042
  3. LAMOTRIGINE. [Interacting]
     Active Substance: LAMOTRIGINE
     Indication: TEMPORAL LOBE EPILEPSY
     Route: 065

REACTIONS (3)
  - Drug interaction [Recovering/Resolving]
  - Nystagmus [Recovering/Resolving]
  - Neurotoxicity [Recovering/Resolving]
